FAERS Safety Report 8268386-8 (Version None)
Quarter: 2012Q1

REPORT INFORMATION
  Report Type: 
  Country: None (occurrence: None)
  Receive Date: 20120327
  Receipt Date: 20100125
  Transmission Date: 20120608
  Serious: Yes (Other)
  Sender: FDA-Public Use
  Company Number: PHHY2010US03296

PATIENT
  Age: 81 Year
  Sex: Female

DRUGS (8)
  1. MULTI-VIT (VITAMINS NOS) [Concomitant]
  2. BUMETANIDE [Concomitant]
  3. OSCAL 500-D (CALCIUM, COLECALCIFEROL) [Concomitant]
  4. PROCHLORPERAZINE [Concomitant]
  5. GLEEVEC [Suspect]
     Indication: SMALL INTESTINE CARCINOMA
     Dosage: 300 MG DAILY, ORAL
     Route: 048
     Dates: start: 20090301
  6. EVISTA [Concomitant]
  7. POTASSIUM CHLORIDE [Concomitant]
  8. OMEPRAZOLE [Concomitant]

REACTIONS (3)
  - ANAEMIA [None]
  - IRON DEFICIENCY [None]
  - MUSCLE SPASMS [None]
